FAERS Safety Report 23213894 (Version 2)
Quarter: 2024Q1

REPORT INFORMATION
  Report Type: Spontaneous
  Country: US (occurrence: US)
  Receive Date: 20231121
  Receipt Date: 20240219
  Transmission Date: 20240410
  Serious: Yes (Hospitalization)
  Sender: FDA-Public Use
  Company Number: US-TEVA-2023-US-2946917

PATIENT
  Age: 58 Year
  Sex: Female

DRUGS (12)
  1. DEXAMETHASONE [Suspect]
     Active Substance: DEXAMETHASONE
     Indication: COVID-19 pneumonia
     Dosage: DOSAGE TEXT: FOR 5 DAYS
     Route: 065
     Dates: start: 2021
  2. FLUDARABINE [Suspect]
     Active Substance: FLUDARABINE PHOSPHATE
     Indication: Chronic myeloid leukaemia
     Dosage: DOSAGE TEXT: 4 CYCLES RECEIVED
     Route: 065
  3. MEROPENEM [Concomitant]
     Active Substance: MEROPENEM
     Indication: Fungaemia
     Route: 065
     Dates: start: 2021
  4. LINEZOLID [Concomitant]
     Active Substance: LINEZOLID
     Indication: Fungaemia
     Route: 065
     Dates: start: 2021
  5. MICAFUNGIN [Concomitant]
     Active Substance: MICAFUNGIN SODIUM
     Indication: Fungaemia
     Route: 065
     Dates: start: 2021
  6. VORICONAZOLE [Concomitant]
     Active Substance: VORICONAZOLE
     Indication: Fungaemia
     Route: 065
     Dates: start: 2021
  7. CYCLOPHOSPHAMIDE [Suspect]
     Active Substance: CYCLOPHOSPHAMIDE
     Indication: Chronic myeloid leukaemia
     Dosage: DOSAGE TEXT: 4 CYCLES RECEIVED
     Route: 065
  8. RITUXIMAB [Suspect]
     Active Substance: RITUXIMAB
     Indication: Chronic myeloid leukaemia
     Dosage: DOSAGE TEXT: 4 CYCLES RECEIVED
     Route: 065
  9. REMDESIVIR [Concomitant]
     Active Substance: REMDESIVIR
     Indication: COVID-19 pneumonia
     Dosage: DOSAGE TEXT: FOR 5 DAYS
     Route: 065
     Dates: start: 2021
  10. PREDNISONE [Concomitant]
     Active Substance: PREDNISONE
     Indication: Acute febrile neutrophilic dermatosis
     Route: 048
     Dates: start: 2021
  11. HYDROCORTISONE [Concomitant]
     Active Substance: HYDROCORTISONE
     Indication: Acute febrile neutrophilic dermatosis
     Route: 061
     Dates: start: 2021
  12. PROPRANOLOL [Concomitant]
     Active Substance: PROPRANOLOL HYDROCHLORIDE
     Indication: Heart rate abnormal

REACTIONS (9)
  - Acute myeloid leukaemia [Not Recovered/Not Resolved]
  - Off label use [Unknown]
  - Pancytopenia [Unknown]
  - Thrombocytopenia [Unknown]
  - Pulmonary embolism [Unknown]
  - Atelectasis [Unknown]
  - Respiratory alkalosis [Unknown]
  - Acute febrile neutrophilic dermatosis [Unknown]
  - Pneumocystis jirovecii pneumonia [Unknown]

NARRATIVE: CASE EVENT DATE: 20210101
